FAERS Safety Report 12535198 (Version 3)
Quarter: 2016Q3

REPORT INFORMATION
  Report Type: Spontaneous
  Country: US (occurrence: US)
  Receive Date: 20160707
  Receipt Date: 20160808
  Transmission Date: 20161109
  Serious: No
  Sender: FDA-Public Use
  Company Number: US-BEH-2015056603

PATIENT
  Sex: Female
  Weight: 67 kg

DRUGS (16)
  1. EFFEXOR [Concomitant]
     Active Substance: VENLAFAXINE HYDROCHLORIDE
  2. TRAZODONE [Concomitant]
     Active Substance: TRAZODONE HYDROCHLORIDE
  3. OXYGEN. [Concomitant]
     Active Substance: OXYGEN
  4. NORVASC [Concomitant]
     Active Substance: AMLODIPINE BESYLATE
  5. HIZENTRA [Suspect]
     Active Substance: HUMAN IMMUNOGLOBULIN G
     Indication: HYPOGAMMAGLOBULINAEMIA
     Route: 058
  6. FERROUS SULFATE. [Concomitant]
     Active Substance: FERROUS SULFATE
  7. LASIX [Concomitant]
     Active Substance: FUROSEMIDE
  8. ADVAIR DISCUS [Concomitant]
  9. ALBUTEROL. [Concomitant]
     Active Substance: ALBUTEROL
  10. BREO ELLIPTA [Concomitant]
     Active Substance: FLUTICASONE FUROATE\VILANTEROL TRIFENATATE
  11. ATENOLOL. [Concomitant]
     Active Substance: ATENOLOL
  12. FLUTICASONE PROPIONATE. [Concomitant]
     Active Substance: FLUTICASONE PROPIONATE
  13. POTASSIUM CHLORIDE. [Concomitant]
     Active Substance: POTASSIUM CHLORIDE
  14. KLONOPIN [Concomitant]
     Active Substance: CLONAZEPAM
  15. PANTOPRAZOLE [Concomitant]
     Active Substance: PANTOPRAZOLE SODIUM
  16. IPRATROPIUM BROMIDE. [Concomitant]
     Active Substance: IPRATROPIUM BROMIDE

REACTIONS (1)
  - Upper respiratory tract infection [Unknown]
